FAERS Safety Report 7900221-7 (Version None)
Quarter: 2011Q4

REPORT INFORMATION
  Report Type: 
  Country: None (occurrence: None)
  Receive Date: 20111104
  Receipt Date: 20111021
  Transmission Date: 20120403
  Serious: Yes (Other)
  Sender: FDA-Public Use
  Company Number: 2011-01037

PATIENT
  Age: 70 Year
  Sex: Female
  Weight: 76.6579 kg

DRUGS (4)
  1. ROSUVASTATIN CALCIUM (CRESTOR) [Concomitant]
  2. LISINOPRIL [Suspect]
     Indication: HYPERTENSION
     Dosage: SEE IMAGE
     Route: 048
     Dates: start: 20110724
  3. LISINOPRIL [Suspect]
     Indication: HYPERTENSION
     Dosage: SEE IMAGE
     Route: 048
     Dates: end: 20110904
  4. LISINOPRIL [Suspect]
     Indication: HYPERTENSION
     Dosage: SEE IMAGE
     Route: 048
     Dates: start: 20110801

REACTIONS (4)
  - PALPITATIONS [None]
  - PRODUCT SUBSTITUTION ISSUE [None]
  - HEADACHE [None]
  - DRUG INEFFECTIVE [None]
